FAERS Safety Report 4991177-8 (Version None)
Quarter: 2006Q2

REPORT INFORMATION
  Report Type: 
  Country: None (occurrence: None)
  Receive Date: 20060427
  Receipt Date: 20060421
  Transmission Date: 20061013
  Serious: Yes (Life-Threatening)
  Sender: FDA-Public Use
  Company Number: 200611598GDS

PATIENT
  Age: 84 Year
  Sex: Male
  Weight: 98 kg

DRUGS (1)
  1. ACTIRA 400 (MOXIFLOXACIN HYDROCHLORIDE) [Suspect]
     Indication: RESPIRATORY DISORDER
     Dosage: 400 MG, QD, ORAL
     Route: 048
     Dates: start: 20060328, end: 20060329

REACTIONS (1)
  - SYNCOPE [None]
